FAERS Safety Report 4632617-3 (Version None)
Quarter: 2005Q2

REPORT INFORMATION
  Report Type: 
  Country: None (occurrence: None)
  Receive Date: 20050408
  Receipt Date: 20050330
  Transmission Date: 20051028
  Serious: Yes (Other)
  Sender: FDA-Public Use
  Company Number: 2005-DE-01240GD

PATIENT
  Age: 34 Year
  Sex: Female

DRUGS (4)
  1. MORPHINE [Suspect]
     Indication: ABDOMINAL PAIN
     Dosage: 4 MG IV
     Route: 042
  2. HYDROMORPHINE (HYDROMORPHINE) (HYDROCOMRPHONE) [Suspect]
     Indication: ABDOMINAL PAIN
     Dosage: 9 MG IV
     Route: 042
  3. CIPROFLOXACIN [Concomitant]
  4. PROMETHAZINE [Suspect]
     Indication: NAUSEA
     Dosage: 12.5 MG IV
     Route: 042

REACTIONS (6)
  - DEPRESSED LEVEL OF CONSCIOUSNESS [None]
  - DRUG INEFFECTIVE [None]
  - DRUG INTERACTION [None]
  - NAUSEA [None]
  - RESPIRATORY DEPRESSION [None]
  - SEDATION [None]
